FAERS Safety Report 7166977-9 (Version None)
Quarter: 2010Q4

REPORT INFORMATION
  Report Type: 
  Country: None (occurrence: None)
  Receive Date: 20101216
  Receipt Date: 20101207
  Transmission Date: 20110411
  Serious: Yes (Hospitalization)
  Sender: FDA-Public Use
  Company Number: A0805492A

PATIENT
  Age: 46 Year
  Sex: Female

DRUGS (5)
  1. AVANDIA [Suspect]
     Indication: DIABETES MELLITUS
     Dosage: 8MG PER DAY
     Route: 048
     Dates: start: 20021028, end: 20070430
  2. GLUCOVANCE [Concomitant]
  3. HUMALOG [Concomitant]
  4. ALTACE [Concomitant]
  5. TRICOR [Concomitant]

REACTIONS (1)
  - MYOCARDIAL INFARCTION [None]
